FAERS Safety Report 8106815-0 (Version None)
Quarter: 2011Q4

REPORT INFORMATION
  Report Type: 
  Country: None (occurrence: None)
  Receive Date: 20111227
  Receipt Date: 20111108
  Transmission Date: 20120403
  Serious: Yes (Hospitalization, Other)
  Sender: FDA-Public Use
  Company Number: PHHY2011US68622

PATIENT
  Age: 54 Year
  Sex: Male

DRUGS (4)
  1. GILENYA [Suspect]
     Indication: MULTIPLE SCLEROSIS
     Dosage: 0.5 MG, QD, ORAL
     Route: 048
     Dates: start: 20110222, end: 20110702
  2. LISINOPRIL [Concomitant]
  3. NORTRIPTYLINE HCL [Concomitant]
  4. ZOLOFT [Concomitant]

REACTIONS (1)
  - HERPES ZOSTER [None]
